FAERS Safety Report 4471824-X (Version None)
Quarter: 2004Q4

REPORT INFORMATION
  Report Type: 
  Country: None (occurrence: None)
  Receive Date: 20041006
  Receipt Date: 20040930
  Transmission Date: 20050328
  Serious: Yes (Hospitalization)
  Sender: FDA-Public Use
  Company Number: 2001070033US

PATIENT
  Sex: Female
  Weight: 72.1 kg

DRUGS (12)
  1. XANAX [Suspect]
     Indication: ANXIETY
     Dosage: SEE IMAGE
     Dates: start: 19860101
  2. XANAX [Suspect]
     Indication: ANXIETY
     Dosage: SEE IMAGE
     Dates: start: 19880101
  3. XANAX [Suspect]
     Indication: ANXIETY
     Dosage: SEE IMAGE
     Dates: start: 19910101
  4. XANAX [Suspect]
  5. ESTROGEN NOS (ESTROGEN NOS) [Concomitant]
  6. SERZONE [Concomitant]
  7. PROZAC [Concomitant]
  8. HYDROCHLOROTHIAZIDE [Concomitant]
  9. ESTRACE [Concomitant]
  10. PAXIL [Concomitant]
  11. HYDROCHLOROTHIAZIDE [Concomitant]
  12. ESTRACE [Concomitant]

REACTIONS (34)
  - ABDOMINAL DISTENSION [None]
  - ANXIETY [None]
  - APHAGIA [None]
  - ASTHENIA [None]
  - BLOOD GLUCOSE FLUCTUATION [None]
  - DEATH OF PARENT [None]
  - DEATH OF RELATIVE [None]
  - DEPRESSION [None]
  - DIFFICULTY IN WALKING [None]
  - DIZZINESS [None]
  - DRUG DEPENDENCE [None]
  - DRUG EFFECT DECREASED [None]
  - DRUG WITHDRAWAL SYNDROME [None]
  - DYSPHAGIA [None]
  - DYSPNOEA [None]
  - FEELING ABNORMAL [None]
  - FEELING JITTERY [None]
  - HEADACHE [None]
  - HYPERVENTILATION [None]
  - IMPAIRED DRIVING ABILITY [None]
  - INSOMNIA [None]
  - MUSCLE CRAMP [None]
  - MYALGIA [None]
  - MYOCARDIAL INFARCTION [None]
  - NAUSEA [None]
  - PANIC ATTACK [None]
  - PHARMACEUTICAL PRODUCT COMPLAINT [None]
  - SENSATION OF HEAVINESS [None]
  - STRESS SYMPTOMS [None]
  - TREMOR [None]
  - VISION BLURRED [None]
  - VISUAL ACUITY REDUCED [None]
  - VOMITING [None]
  - WEIGHT DECREASED [None]
